FAERS Safety Report 11861383 (Version 1)
Quarter: 2015Q4

REPORT INFORMATION
  Report Type: Spontaneous
  Country: US (occurrence: US)
  Receive Date: 20151222
  Receipt Date: 20151222
  Transmission Date: 20160305
  Serious: No
  Sender: FDA-Public Use
  Company Number: US-AVANIR PHARMACEUTICALS, INC.-2013NUEUSA00247

PATIENT
  Sex: Male

DRUGS (3)
  1. NUEDEXTA [Suspect]
     Active Substance: DEXTROMETHORPHAN HYDROBROMIDE\QUINIDINE SULFATE
     Indication: AFFECT LABILITY
     Dosage: 1 CAP, Q12 HRS
     Dates: start: 20130718, end: 20130808
  2. NOVOLOG [Concomitant]
     Active Substance: INSULIN ASPART
     Indication: DIABETES MELLITUS
     Dosage: 15 UNITS
  3. HUMALOG [Concomitant]
     Active Substance: INSULIN LISPRO
     Indication: DIABETES MELLITUS
     Dosage: 5.5

REACTIONS (8)
  - Hallucination, visual [Recovering/Resolving]
  - Unresponsive to stimuli [Recovering/Resolving]
  - Condition aggravated [None]
  - Hallucination, auditory [Recovering/Resolving]
  - Disease progression [None]
  - Tremor [Recovering/Resolving]
  - Schizophrenia [None]
  - Staring [Recovering/Resolving]
